FAERS Safety Report 9314598 (Version 2)
Quarter: 2013Q4

REPORT INFORMATION
  Report Type: Spontaneous
  Country: US (occurrence: US)
  Receive Date: 20130529
  Receipt Date: 20131220
  Transmission Date: 20140711
  Serious: Yes (Other)
  Sender: FDA-Public Use
  Company Number: US-PFIZER INC-2013160695

PATIENT
  Sex: Male
  Weight: 74.83 kg

DRUGS (5)
  1. ARTHROTEC [Suspect]
     Indication: OSTEOARTHRITIS
     Dosage: 75 MG, 2X/DAY
     Dates: end: 201309
  2. ARTHROTEC [Suspect]
     Dosage: UNK
  3. DICLOFENAC EPOLAMINE [Suspect]
     Dosage: UNK
  4. TRAMADOL [Concomitant]
     Indication: BACK PAIN
     Dosage: UNK
  5. ASPIRIN [Concomitant]
     Dosage: UNK, AS NEEDED

REACTIONS (7)
  - Myasthenia gravis [Recovering/Resolving]
  - Libido decreased [Not Recovered/Not Resolved]
  - Hearing impaired [Not Recovered/Not Resolved]
  - Abdominal discomfort [Recovered/Resolved]
  - Diarrhoea [Recovered/Resolved]
  - Alopecia [Not Recovered/Not Resolved]
  - Intentional drug misuse [Unknown]
